FAERS Safety Report 10288514 (Version 2)
Quarter: 2015Q4

REPORT INFORMATION
  Report Type: Spontaneous
  Country: US (occurrence: US)
  Receive Date: 20140709
  Receipt Date: 20151020
  Transmission Date: 20160304
  Serious: Yes (Death)
  Sender: FDA-Public Use
  Company Number: US-MYLANLABS-2014S1015459

PATIENT

DRUGS (1)
  1. DIGOXIN. [Suspect]
     Active Substance: DIGOXIN
     Indication: HEART RATE IRREGULAR
     Dosage: .25 MG,QD
     Route: 048
     Dates: start: 20080418

REACTIONS (2)
  - Head injury [Fatal]
  - Diarrhoea [Unknown]

NARRATIVE: CASE EVENT DATE: 200905
